FAERS Safety Report 9354202 (Version 1)
Quarter: 2013Q2

REPORT INFORMATION
  Report Type: Spontaneous
  Country: US (occurrence: US)
  Receive Date: 20130618
  Receipt Date: 20130618
  Transmission Date: 20140414
  Serious: Yes (Other)
  Sender: FDA-Public Use
  Company Number: US-ASTRAZENECA-2013SE42084

PATIENT
  Age: 51 Year
  Sex: Male

DRUGS (12)
  1. TOPROL XL [Suspect]
     Indication: HYPERTENSION
     Route: 048
     Dates: start: 2005, end: 2007
  2. TOPROL XL [Suspect]
     Indication: HYPERTENSION
     Route: 048
     Dates: start: 2007, end: 20130605
  3. TOPROL XL [Suspect]
     Indication: HYPERTENSION
     Route: 048
     Dates: start: 20130609
  4. CRESTOR [Suspect]
     Indication: LOW DENSITY LIPOPROTEIN INCREASED
     Route: 048
     Dates: start: 201211
  5. RENEXA [Suspect]
     Route: 065
  6. PLAVIX [Concomitant]
     Dates: start: 2008
  7. ASPIRIN [Concomitant]
     Dates: start: 2003, end: 2008
  8. ASPIRIN [Concomitant]
     Dates: start: 2008
  9. NIASPAN [Concomitant]
     Indication: LOW DENSITY LIPOPROTEIN ABNORMAL
     Dates: start: 2005
  10. NIASPAN [Concomitant]
     Indication: BLOOD TRIGLYCERIDES ABNORMAL
     Dates: start: 2005
  11. FISH OIL [Concomitant]
     Indication: HIGH DENSITY LIPOPROTEIN ABNORMAL
     Dates: start: 2008
  12. COQ 10 [Concomitant]
     Indication: METABOLIC DISORDER
     Dates: start: 2010

REACTIONS (6)
  - Angina pectoris [Unknown]
  - Blood pressure increased [Unknown]
  - Low density lipoprotein increased [Unknown]
  - Tachycardia [Unknown]
  - Blood pressure decreased [Not Recovered/Not Resolved]
  - Dizziness [Not Recovered/Not Resolved]
